FAERS Safety Report 9696849 (Version 2)
Quarter: 2013Q4

REPORT INFORMATION
  Report Type: Spontaneous
  Country: US (occurrence: US)
  Receive Date: 20131119
  Receipt Date: 20131119
  Transmission Date: 20140711
  Serious: No
  Sender: FDA-Public Use
  Company Number: US-GILEAD-2007-0013547

PATIENT
  Sex: Female

DRUGS (10)
  1. LETAIRIS [Suspect]
     Indication: PULMONARY ARTERIAL HYPERTENSION
     Route: 048
     Dates: start: 20070808
  2. COZAAR [Concomitant]
     Route: 048
  3. CELEBREX [Concomitant]
     Route: 048
  4. NORVASC [Concomitant]
     Route: 048
  5. VIVELLE [Concomitant]
     Route: 061
  6. URSODIOL [Concomitant]
     Route: 048
  7. VALTREX [Concomitant]
     Route: 048
  8. NEXIUM [Concomitant]
     Route: 048
  9. ENBREL [Concomitant]
     Route: 058
  10. CHROMOGEN [Concomitant]
     Route: 048

REACTIONS (6)
  - Asthenia [Unknown]
  - Influenza like illness [Unknown]
  - Dizziness [Unknown]
  - Dyspnoea [Unknown]
  - Palpitations [Unknown]
  - Headache [Unknown]
